FAERS Safety Report 5401386-1 (Version None)
Quarter: 2007Q3

REPORT INFORMATION
  Report Type: 
  Country: None (occurrence: None)
  Receive Date: 20070726
  Receipt Date: 20070711
  Transmission Date: 20080115
  Serious: Yes (Other)
  Sender: FDA-Public Use
  Company Number: 2007JP003319

PATIENT
  Age: 57 Year
  Sex: Male

DRUGS (4)
  1. PROGRAF [Suspect]
     Indication: RENAL TRANSPLANT
  2. SIMULECT [Concomitant]
  3. METHYLPREDNISOLONE [Concomitant]
  4. MYCOPHENOLATE MOFETIL [Concomitant]

REACTIONS (3)
  - ANASTOMOTIC STENOSIS [None]
  - COMPLICATIONS OF TRANSPLANT SURGERY [None]
  - ILIAC ARTERY THROMBOSIS [None]
